FAERS Safety Report 26144787 (Version 1)
Quarter: 2025Q4

REPORT INFORMATION
  Report Type: Spontaneous
  Country: US (occurrence: None)
  Receive Date: 20251210
  Receipt Date: 20251210
  Transmission Date: 20260118
  Serious: Yes (Hospitalization)
  Sender: FDA-CTU
  Company Number: None

PATIENT
  Age: 93 Year
  Sex: Male

DRUGS (1)
  1. VYNDAMAX [Suspect]
     Active Substance: TAFAMIDIS
     Indication: Amyloidosis
     Dosage: TAKE 1 CAPSULE BY MOUTH ONCE DAILY
     Route: 048
     Dates: start: 20250326

REACTIONS (3)
  - Dyspnoea [None]
  - Oedema peripheral [None]
  - Oedema peripheral [None]

NARRATIVE: CASE EVENT DATE: 20251204
